FAERS Safety Report 8900097 (Version 1)
Quarter: 2012Q4

REPORT INFORMATION
  Report Type: 
  Country: IT (occurrence: IT)
  Receive Date: 20121109
  Receipt Date: 20121109
  Transmission Date: 20130627
  Serious: Yes (Other)
  Sender: FDA-Public Use
  Company Number: PHHY2012IT102697

PATIENT
  Age: 38 Year
  Sex: Female

DRUGS (1)
  1. CICLOSPORIN [Suspect]

REACTIONS (3)
  - Hypertensive crisis [Unknown]
  - Renal impairment [Unknown]
  - Blood creatine phosphokinase abnormal [Unknown]
